FAERS Safety Report 15538549 (Version 1)
Quarter: 2018Q4

REPORT INFORMATION
  Report Type: Spontaneous
  Country: US (occurrence: US)
  Receive Date: 20181022
  Receipt Date: 20181022
  Transmission Date: 20190205
  Serious: No
  Sender: FDA-Public Use
  Company Number: US-EPIC PHARMA LLC-2018EPC00355

PATIENT
  Age: 65 Year
  Sex: Male

DRUGS (1)
  1. GABAPENTIN. [Suspect]
     Active Substance: GABAPENTIN

REACTIONS (2)
  - Abdominal discomfort [Unknown]
  - Drug hypersensitivity [Unknown]
